FAERS Safety Report 16090505 (Version 1)
Quarter: 2019Q1

REPORT INFORMATION
  Report Type: Report from Study
  Country: IT (occurrence: IT)
  Receive Date: 20190319
  Receipt Date: 20190319
  Transmission Date: 20190418
  Serious: Yes (Hospitalization)
  Sender: FDA-Public Use
  Company Number: IT-MYLANLABS-2019M1024118

PATIENT
  Age: 86 Year
  Sex: Female

DRUGS (9)
  1. QUETIAPINE. [Concomitant]
     Active Substance: QUETIAPINE
  2. OMEPRAZOLE SODIUM [Concomitant]
     Active Substance: OMEPRAZOLE SODIUM
  3. PRISMA                             /00390602/ [Concomitant]
     Active Substance: MIANSERIN HYDROCHLORIDE
  4. AMARYL [Concomitant]
     Active Substance: GLIMEPIRIDE
  5. TRIATEC                            /00885601/ [Concomitant]
     Active Substance: RAMIPRIL
  6. ALLOPURINOL. [Concomitant]
     Active Substance: ALLOPURINOL
  7. METFORMIN [Suspect]
     Active Substance: METFORMIN HYDROCHLORIDE
     Indication: TYPE 2 DIABETES MELLITUS
     Dosage: 2350 MILLIGRAM, QD
     Route: 048
     Dates: start: 20170828, end: 20180710
  8. MODURETIC 5-50 [Concomitant]
     Active Substance: AMILORIDE HYDROCHLORIDE\HYDROCHLOROTHIAZIDE
  9. CITALOPRAM [Concomitant]
     Active Substance: CITALOPRAM HYDROBROMIDE

REACTIONS (2)
  - Hypoglycaemic coma [Recovering/Resolving]
  - Medication error [Recovering/Resolving]

NARRATIVE: CASE EVENT DATE: 20180710
